FAERS Safety Report 6165800-9 (Version None)
Quarter: 2009Q2

REPORT INFORMATION
  Report Type: 
  Country: None (occurrence: None)
  Receive Date: 20090422
  Receipt Date: 20090325
  Transmission Date: 20091009
  Serious: Yes (Congenital Anomaly)
  Sender: FDA-Public Use
  Company Number: 2009S1005284

PATIENT

DRUGS (2)
  1. CARBAMAZEPINE [Suspect]
     Indication: EPILEPSY
     Dosage: TRANSPLACENTAL
     Route: 064
  2. LEVETIRACETAM [Suspect]
     Indication: EPILEPSY
     Dosage: TRANSPLACENTAL
     Route: 064

REACTIONS (3)
  - ABORTION INDUCED [None]
  - MATERNAL DRUGS AFFECTING FOETUS [None]
  - SPINA BIFIDA [None]
